FAERS Safety Report 6145776-0 (Version None)
Quarter: 2009Q2

REPORT INFORMATION
  Report Type: 
  Country: None (occurrence: None)
  Receive Date: 20090407
  Receipt Date: 20090327
  Transmission Date: 20091009
  Serious: Yes (Other)
  Sender: FDA-Public Use
  Company Number: DE-JNJFOC-20090306273

PATIENT
  Age: 29 Year
  Sex: Male
  Weight: 70 kg

DRUGS (3)
  1. REMICADE [Suspect]
     Indication: PSORIASIS
     Dosage: TOTAL OF THREE INFUSIONS
     Route: 042
  2. PREDNISOLONE [Concomitant]
     Indication: PREMEDICATION
     Route: 042
  3. FENISTIL [Concomitant]
     Indication: PREMEDICATION
     Route: 042

REACTIONS (7)
  - BRONCHOSPASM [None]
  - DYSPNOEA [None]
  - HYPOTENSION [None]
  - INFUSION RELATED REACTION [None]
  - PALPITATIONS [None]
  - TACHYCARDIA [None]
  - URTICARIA [None]
